FAERS Safety Report 21144268 (Version 1)
Quarter: 2022Q3

REPORT INFORMATION
  Report Type: Spontaneous
  Country: US (occurrence: None)
  Receive Date: 20220728
  Receipt Date: 20220728
  Transmission Date: 20221027
  Serious: No
  Sender: FDA-Public Use
  Company Number: None

PATIENT
  Age: 65 Year
  Sex: Female
  Weight: 84.6 kg

DRUGS (1)
  1. CITROMA [Suspect]
     Active Substance: MAGNESIUM CITRATE
     Indication: Constipation
     Dosage: OTHER QUANTITY : 1 1 BOTTLE ON 2 DAYS;?
     Route: 048
     Dates: start: 20220724, end: 20220725

REACTIONS (3)
  - Recalled product administered [None]
  - Musculoskeletal chest pain [None]
  - Respiratory tract infection viral [None]

NARRATIVE: CASE EVENT DATE: 20220724
